FAERS Safety Report 7550501-2 (Version None)
Quarter: 2011Q2

REPORT INFORMATION
  Report Type: 
  Country: None (occurrence: None)
  Receive Date: 20110615
  Receipt Date: 20110606
  Transmission Date: 20111010
  Serious: Yes (Hospitalization)
  Sender: FDA-Public Use
  Company Number: FR-ELI_LILLY_AND_COMPANY-FR201102004880

PATIENT
  Age: 34 Year
  Sex: Female
  Weight: 67 kg

DRUGS (5)
  1. ZYPREXA [Suspect]
     Dosage: 10 MG, QD
     Route: 048
     Dates: end: 20110217
  2. HALDOL [Concomitant]
     Indication: PSYCHOTIC DISORDER
     Dosage: 5 MG, EVERY 6 HRS
     Route: 048
     Dates: start: 20100801
  3. ZYPREXA [Suspect]
     Indication: BIPOLAR DISORDER
     Dosage: 5 MG, QD
     Route: 048
     Dates: start: 20110214
  4. PRAZEPAM [Concomitant]
     Indication: ANXIETY
     Dosage: 20 GTT, EACH EVENING
     Route: 048
     Dates: start: 20100801
  5. TERCIAN [Concomitant]
     Indication: SEDATION
     Dosage: 50 GTT, PRN
     Route: 048
     Dates: start: 20110101

REACTIONS (1)
  - MANIA [None]
